FAERS Safety Report 8030400-2 (Version None)
Quarter: 2012Q1

REPORT INFORMATION
  Report Type: 
  Country: None (occurrence: None)
  Receive Date: 20120109
  Receipt Date: 20120109
  Transmission Date: 20120608
  Serious: Yes (Other)
  Sender: FDA-Public Use
  Company Number: None

PATIENT
  Age: 7 Year
  Sex: Female
  Weight: 19.504 kg

DRUGS (2)
  1. SINGULAIR [Suspect]
     Indication: MULTIPLE ALLERGIES
  2. SINGULAIR [Suspect]
     Indication: ASTHMA

REACTIONS (9)
  - ABNORMAL DREAMS [None]
  - HALLUCINATION, VISUAL [None]
  - TREMOR [None]
  - ATTENTION DEFICIT/HYPERACTIVITY DISORDER [None]
  - ANXIETY [None]
  - ABNORMAL BEHAVIOUR [None]
  - AGITATION [None]
  - RESTLESSNESS [None]
  - IRRITABILITY [None]
